FAERS Safety Report 14937189 (Version 1)
Quarter: 2018Q2

REPORT INFORMATION
  Report Type: Report from Study
  Country: JP (occurrence: JP)
  Receive Date: 20180525
  Receipt Date: 20180525
  Transmission Date: 20180711
  Serious: Yes (Hospitalization, Other)
  Sender: FDA-Public Use
  Company Number: JP-AMGEN-JPNNI2018035643

PATIENT
  Age: 68 Year
  Sex: Male

DRUGS (47)
  1. CARFILZOMIB [Suspect]
     Active Substance: CARFILZOMIB
     Dosage: 27 MG/M2, UNK
     Route: 041
     Dates: start: 20161213, end: 20161214
  2. DECADRON [Suspect]
     Active Substance: DEXAMETHASONE
     Dosage: 18 MG, UNK
     Route: 048
     Dates: start: 20160920
  3. DECADRON [Suspect]
     Active Substance: DEXAMETHASONE
     Dosage: 18 MG, UNK
     Route: 048
     Dates: start: 20170223
  4. CARFILZOMIB [Suspect]
     Active Substance: CARFILZOMIB
     Dosage: 27 MG/M2, UNK
     Route: 041
     Dates: start: 20161018, end: 20161019
  5. CARFILZOMIB [Suspect]
     Active Substance: CARFILZOMIB
     Dosage: 27 MG/M2, UNK
     Route: 041
     Dates: start: 20161122, end: 20161122
  6. CARFILZOMIB [Suspect]
     Active Substance: CARFILZOMIB
     Dosage: 27 MG/M2, UNK
     Route: 041
     Dates: start: 20161124, end: 20161124
  7. CARFILZOMIB [Suspect]
     Active Substance: CARFILZOMIB
     Dosage: 27 MG/M2, UNK
     Route: 041
     Dates: start: 20170110, end: 20170111
  8. CARFILZOMIB [Suspect]
     Active Substance: CARFILZOMIB
     Dosage: 27 MG/M2, UNK
     Route: 041
     Dates: start: 20170223, end: 20170224
  9. REVLIMID [Suspect]
     Active Substance: LENALIDOMIDE
     Dosage: 25 MG, UNK
     Route: 048
     Dates: start: 20161206, end: 20161226
  10. DECADRON [Suspect]
     Active Substance: DEXAMETHASONE
     Dosage: 18 MG, UNK
     Route: 048
     Dates: start: 20160927
  11. DECADRON [Suspect]
     Active Substance: DEXAMETHASONE
     Dosage: 18 MG, UNK
     Route: 048
     Dates: start: 20161011
  12. DECADRON [Suspect]
     Active Substance: DEXAMETHASONE
     Dosage: 18 MG, UNK
     Route: 048
     Dates: start: 20170110
  13. CARFILZOMIB [Suspect]
     Active Substance: CARFILZOMIB
     Dosage: 27 MG/M2, UNK
     Route: 041
     Dates: start: 20160920, end: 20160921
  14. CARFILZOMIB [Suspect]
     Active Substance: CARFILZOMIB
     Dosage: 27 MG/M2, UNK
     Route: 041
     Dates: start: 20161011, end: 20161012
  15. CARFILZOMIB [Suspect]
     Active Substance: CARFILZOMIB
     Dosage: 27 MG/M2, UNK
     Route: 041
     Dates: start: 20170104, end: 20170105
  16. CARFILZOMIB [Suspect]
     Active Substance: CARFILZOMIB
     Dosage: 27 MG/M2, UNK
     Route: 041
     Dates: start: 20170302, end: 20170303
  17. DECADRON [Suspect]
     Active Substance: DEXAMETHASONE
     Dosage: 18 MG, UNK
     Route: 048
     Dates: start: 20161206
  18. DECADRON [Suspect]
     Active Substance: DEXAMETHASONE
     Dosage: 18 MG, UNK
     Route: 048
     Dates: start: 20161213
  19. CARFILZOMIB [Suspect]
     Active Substance: CARFILZOMIB
     Dosage: 27 MG/M2, UNK
     Route: 041
     Dates: start: 20161206, end: 20161207
  20. DECADRON [Suspect]
     Active Substance: DEXAMETHASONE
     Dosage: 18 MG, UNK
     Route: 048
     Dates: start: 20161004
  21. DECADRON [Suspect]
     Active Substance: DEXAMETHASONE
     Dosage: 18 MG, UNK
     Route: 048
     Dates: start: 20161101
  22. DECADRON [Suspect]
     Active Substance: DEXAMETHASONE
     Dosage: 18 MG, UNK
     Route: 048
     Dates: start: 20161129
  23. DECADRON [Suspect]
     Active Substance: DEXAMETHASONE
     Dosage: 18 MG, UNK
     Route: 048
     Dates: start: 20161220
  24. DECADRON [Suspect]
     Active Substance: DEXAMETHASONE
     Dosage: 18 MG, UNK
     Route: 048
     Dates: start: 20170104
  25. DECADRON [Suspect]
     Active Substance: DEXAMETHASONE
     Dosage: 18 MG, UNK
     Route: 048
     Dates: start: 20170302
  26. CARFILZOMIB [Suspect]
     Active Substance: CARFILZOMIB
     Dosage: 27 MG/M2, UNK
     Route: 041
     Dates: start: 20161220, end: 20161221
  27. REVLIMID [Suspect]
     Active Substance: LENALIDOMIDE
     Indication: PLASMA CELL MYELOMA
     Dosage: 20 MG, UNK
     Route: 048
     Dates: start: 20160913, end: 20160919
  28. REVLIMID [Suspect]
     Active Substance: LENALIDOMIDE
     Dosage: 25 MG, UNK
     Route: 048
     Dates: start: 20161108, end: 20161128
  29. CARFILZOMIB [Suspect]
     Active Substance: CARFILZOMIB
     Dosage: 27 MG/M2, UNK
     Route: 041
     Dates: start: 20161115, end: 20161116
  30. REVLIMID [Suspect]
     Active Substance: LENALIDOMIDE
     Dosage: 25 MG, UNK
     Route: 048
     Dates: start: 20161011, end: 20161031
  31. DECADRON [Suspect]
     Active Substance: DEXAMETHASONE
     Dosage: 18 MG, UNK
     Route: 048
     Dates: start: 20161025
  32. DECADRON [Suspect]
     Active Substance: DEXAMETHASONE
     Dosage: 18 MG, UNK
     Route: 048
     Dates: start: 20170316
  33. CARFILZOMIB [Suspect]
     Active Substance: CARFILZOMIB
     Dosage: 27 MG/M2, UNK
     Route: 041
     Dates: start: 20170309, end: 20170310
  34. REVLIMID [Suspect]
     Active Substance: LENALIDOMIDE
     Dosage: 25 MG, UNK
     Route: 048
     Dates: start: 20160920, end: 20161003
  35. REVLIMID [Suspect]
     Active Substance: LENALIDOMIDE
     Dosage: 25 MG, UNK
     Route: 048
     Dates: start: 20170104, end: 20170124
  36. DECADRON [Suspect]
     Active Substance: DEXAMETHASONE
     Indication: PLASMA CELL MYELOMA
     Dosage: 18 MG, UNK
     Route: 048
     Dates: start: 20160913
  37. DECADRON [Suspect]
     Active Substance: DEXAMETHASONE
     Dosage: 18 MG, UNK
     Route: 048
     Dates: start: 20161122
  38. DECADRON [Suspect]
     Active Substance: DEXAMETHASONE
     Dosage: 18 MG, UNK
     Route: 048
     Dates: start: 20161227
  39. CARFILZOMIB [Suspect]
     Active Substance: CARFILZOMIB
     Indication: PLASMA CELL MYELOMA
     Dosage: 20 MG/M2, UNK
     Route: 041
     Dates: start: 20160913, end: 20160914
  40. CARFILZOMIB [Suspect]
     Active Substance: CARFILZOMIB
     Dosage: 27 MG/M2, UNK
     Route: 041
     Dates: start: 20160927, end: 20160928
  41. CARFILZOMIB [Suspect]
     Active Substance: CARFILZOMIB
     Dosage: 27 MG/M2, UNK
     Route: 041
     Dates: start: 20161025, end: 20161026
  42. CARFILZOMIB [Suspect]
     Active Substance: CARFILZOMIB
     Dosage: 27 MG/M2, UNK
     Route: 041
     Dates: start: 20161108, end: 20161109
  43. DECADRON [Suspect]
     Active Substance: DEXAMETHASONE
     Dosage: 18 MG, UNK
     Route: 048
     Dates: start: 20161018
  44. DECADRON [Suspect]
     Active Substance: DEXAMETHASONE
     Dosage: 18 MG, UNK
     Route: 048
     Dates: start: 20161108
  45. DECADRON [Suspect]
     Active Substance: DEXAMETHASONE
     Dosage: 18 MG, UNK
     Route: 048
     Dates: start: 20161115
  46. DECADRON [Suspect]
     Active Substance: DEXAMETHASONE
     Dosage: 18 MG, UNK
     Route: 048
     Dates: start: 20170309
  47. VALACICLOVIR [Concomitant]
     Active Substance: VALACYCLOVIR HYDROCHLORIDE
     Dosage: UNK

REACTIONS (6)
  - Pleural effusion [Recovered/Resolved]
  - Pneumonia [Unknown]
  - Cardiac failure [Unknown]
  - Neutrophil count decreased [Recovered/Resolved]
  - Sepsis [Recovered/Resolved]
  - Anaemia [Not Recovered/Not Resolved]

NARRATIVE: CASE EVENT DATE: 2017
